FAERS Safety Report 11518735 (Version 1)
Quarter: 2015Q3

REPORT INFORMATION
  Report Type: Spontaneous
  Country: US (occurrence: US)
  Receive Date: 20150917
  Receipt Date: 20150917
  Transmission Date: 20151125
  Serious: No
  Sender: FDA-Public Use
  Company Number: US-BAUSCH-BL-2015-014172

PATIENT
  Age: 72 Year
  Sex: Female
  Weight: 65.83 kg

DRUGS (1)
  1. ERYTHROMYCIN OPHTHALMIC OINTMENT USP 0.5% [Suspect]
     Active Substance: ERYTHROMYCIN
     Indication: EYE INFECTION
     Dosage: APPLIED TO THE RIGHT EYE 2-3 TIMES DAILY
     Route: 061
     Dates: start: 20150520

REACTIONS (1)
  - Vision blurred [Not Recovered/Not Resolved]

NARRATIVE: CASE EVENT DATE: 20150520
